FAERS Safety Report 21301022 (Version 1)
Quarter: 2022Q3

REPORT INFORMATION
  Report Type: Other
  Country: CA (occurrence: CA)
  Receive Date: 20220907
  Receipt Date: 20220907
  Transmission Date: 20221026
  Serious: Yes (Hospitalization, Other)
  Sender: FDA-Public Use
  Company Number: CA-CELLTRION INC.-2022CA014413

PATIENT

DRUGS (11)
  1. RITUXIMAB [Suspect]
     Active Substance: RITUXIMAB
     Indication: Rheumatoid arthritis
     Dosage: 1000 MG
     Route: 042
  2. RITUXIMAB [Suspect]
     Active Substance: RITUXIMAB
     Indication: Dermatomyositis
  3. PREDNISONE [Suspect]
     Active Substance: PREDNISONE
     Indication: Product used for unknown indication
     Dosage: 50 MG, 2 EVERY 1 DAYS
     Route: 065
  4. PREDNISONE [Suspect]
     Active Substance: PREDNISONE
     Indication: Product used for unknown indication
     Dosage: 1 EVERY 1 DAYS
     Route: 065
  5. PREDNISONE [Suspect]
     Active Substance: PREDNISONE
     Dosage: 15MG, 1 EVERY 1 DAYS
     Route: 065
  6. ACETAMINOPHEN [Concomitant]
     Active Substance: ACETAMINOPHEN
     Route: 065
  7. BENADRYL [Concomitant]
     Active Substance: DIPHENHYDRAMINE HYDROCHLORIDE
     Route: 048
  8. CYCLOSPORINE [Concomitant]
     Active Substance: CYCLOSPORINE
     Route: 065
  9. DEXAMETHASONE [Concomitant]
     Active Substance: DEXAMETHASONE
     Route: 042
  10. DEXAMETHASONE [Concomitant]
     Active Substance: DEXAMETHASONE
     Route: 065
  11. ZOPICLONE [Concomitant]
     Active Substance: ZOPICLONE

REACTIONS (17)
  - Blood creatine phosphokinase increased [Recovered/Resolved]
  - Complement factor C4 decreased [Recovered/Resolved]
  - Cushingoid [Recovered/Resolved]
  - Dermatomyositis [Recovered/Resolved]
  - Haemoglobin decreased [Recovered/Resolved]
  - Iron deficiency [Recovered/Resolved]
  - Iron deficiency anaemia [Recovered/Resolved]
  - Joint arthroplasty [Recovered/Resolved]
  - Muscular weakness [Recovered/Resolved]
  - Myositis [Recovered/Resolved]
  - Rales [Recovered/Resolved]
  - Red blood cell sedimentation rate increased [Recovered/Resolved]
  - Sleep disorder [Recovered/Resolved]
  - Weight decreased [Recovered/Resolved]
  - COVID-19 pneumonia [Recovered/Resolved]
  - Fatigue [Recovered/Resolved]
  - Off label use [Unknown]
